FAERS Safety Report 8502852-2 (Version None)
Quarter: 2012Q3

REPORT INFORMATION
  Report Type: 
  Country: None (occurrence: None)
  Receive Date: 20120711
  Receipt Date: 20120702
  Transmission Date: 20120928
  Serious: Yes (Hospitalization)
  Sender: FDA-Public Use
  Company Number: US-CELGENEUS-163-21880-12062322

PATIENT
  Sex: Female

DRUGS (1)
  1. REVLIMID [Suspect]
     Indication: MULTIPLE MYELOMA
     Dosage: 25 MILLIGRAM
     Route: 048
     Dates: start: 20120601, end: 20120603

REACTIONS (6)
  - NAUSEA [None]
  - BLOOD GLUCOSE INCREASED [None]
  - CONSTIPATION [None]
  - VOMITING [None]
  - BLOOD PRESSURE INCREASED [None]
  - PYREXIA [None]
